FAERS Safety Report 23468553 (Version 1)
Quarter: 2024Q1

REPORT INFORMATION
  Report Type: Spontaneous
  Country: US (occurrence: None)
  Receive Date: 20240201
  Receipt Date: 20240201
  Transmission Date: 20240409
  Serious: Yes (Life-Threatening, Hospitalization, Disabling)
  Sender: FDA-Public Use
  Company Number: None

PATIENT
  Age: 21 Year
  Sex: Female
  Weight: 73.4 kg

DRUGS (6)
  1. RYLAZE [Suspect]
     Active Substance: ASPARAGINASE ERWINIA CHRYSANTHEMI (RECOMBINANT)-RYWN
     Indication: Acute lymphocytic leukaemia
     Dosage: OTHER FREQUENCY : QMWF X6 DOSES;?
     Route: 030
     Dates: start: 20231208, end: 20231220
  2. RYLAZE [Suspect]
     Active Substance: ASPARAGINASE ERWINIA CHRYSANTHEMI (RECOMBINANT)-RYWN
     Indication: Hypersensitivity
  3. VINCRISTINE [Concomitant]
     Active Substance: VINCRISTINE
     Dates: start: 20231206, end: 20231220
  4. DEXAMETHASONE [Concomitant]
     Active Substance: DEXAMETHASONE
     Dates: start: 20231206, end: 20231212
  5. DOXORUBICIN [Concomitant]
     Active Substance: DOXORUBICIN
     Dates: start: 20231206, end: 20231220
  6. METHOTREXATE [Concomitant]
     Active Substance: METHOTREXATE
     Dates: start: 20231206, end: 20231206

REACTIONS (8)
  - Haemorrhagic stroke [None]
  - Cerebral mass effect [None]
  - Cerebral mass effect [None]
  - Superior sagittal sinus thrombosis [None]
  - Subgaleal haematoma [None]
  - Treatment delayed [None]
  - Leukaemia [None]
  - General physical condition abnormal [None]

NARRATIVE: CASE EVENT DATE: 20231229
